FAERS Safety Report 17066683 (Version 2)
Quarter: 2019Q4

REPORT INFORMATION
  Report Type: Report from Study
  Country: US (occurrence: US)
  Receive Date: 20191123
  Receipt Date: 20191217
  Transmission Date: 20200122
  Serious: Yes (Death, Hospitalization, Other)
  Sender: FDA-Public Use
  Company Number: US-TAKEDA-2019TUS038478

PATIENT
  Age: 59 Year
  Sex: Male

DRUGS (8)
  1. BIOTIN [Concomitant]
     Active Substance: BIOTIN
     Dosage: UNK
     Route: 065
  2. ACYCLOVIR                          /00587301/ [Concomitant]
     Active Substance: ACYCLOVIR
     Dosage: UNK
     Route: 065
  3. VITAMINS WITH MINERALS [Concomitant]
     Active Substance: MINERALS\VITAMINS
     Dosage: UNK
     Route: 065
  4. PONATINIB [Suspect]
     Active Substance: PONATINIB
     Indication: CHRONIC LYMPHOCYTIC LEUKAEMIA
     Dosage: 30 MILLIGRAM, QD
     Route: 048
  5. PROTONIX                           /00661201/ [Concomitant]
     Active Substance: OMEPRAZOLE
     Dosage: UNK
     Route: 065
  6. PONATINIB [Suspect]
     Active Substance: PONATINIB
     Indication: ACUTE LYMPHOCYTIC LEUKAEMIA
     Dosage: 15 MILLIGRAM, QD
     Route: 048
  7. AMLODIPINE BESYLATE. [Concomitant]
     Active Substance: AMLODIPINE BESYLATE
     Dosage: UNK
     Route: 065
  8. BENADRYL ALLERGY [Concomitant]
     Active Substance: DIPHENHYDRAMINE HYDROCHLORIDE
     Dosage: UNK

REACTIONS (31)
  - Malaise [Unknown]
  - Pain [Unknown]
  - Weight decreased [Unknown]
  - Vision blurred [Unknown]
  - Hyperhidrosis [Unknown]
  - Dysphonia [Unknown]
  - Hypoaesthesia [Unknown]
  - Flatulence [Unknown]
  - Dysstasia [Unknown]
  - Abdominal pain upper [Unknown]
  - Nausea [Unknown]
  - Speech disorder [Unknown]
  - Cataract [Unknown]
  - Rash pruritic [Unknown]
  - Neoplasm progression [Unknown]
  - Headache [Unknown]
  - Hypertension [Unknown]
  - Night sweats [Unknown]
  - Paraesthesia [Unknown]
  - Contusion [Unknown]
  - Dyspnoea [Unknown]
  - Death [Fatal]
  - Decreased appetite [Unknown]
  - Dyspepsia [Unknown]
  - Pyrexia [Unknown]
  - Spinal pain [Unknown]
  - Faeces discoloured [Unknown]
  - Haemorrhage [Unknown]
  - Syncope [Unknown]
  - Tremor [Unknown]
  - Product dose omission [Unknown]

NARRATIVE: CASE EVENT DATE: 201904
